FAERS Safety Report 7944109-4 (Version None)
Quarter: 2011Q4

REPORT INFORMATION
  Report Type: 
  Country: None (occurrence: None)
  Receive Date: 20111128
  Receipt Date: 20111116
  Transmission Date: 20120403
  Serious: Yes (Hospitalization)
  Sender: FDA-Public Use
  Company Number: FR-ASTRAZENECA-2011SE69644

PATIENT
  Age: 5673 Day
  Sex: Female

DRUGS (3)
  1. LOVENOX [Concomitant]
     Indication: PROPHYLAXIS
     Route: 058
     Dates: start: 20110915
  2. KETOPROFEN [Suspect]
     Indication: PAIN
     Route: 048
     Dates: start: 20110915, end: 20110917
  3. NEXIUM [Suspect]
     Indication: PROPHYLAXIS AGAINST GASTROINTESTINAL ULCER
     Route: 048
     Dates: start: 20110915, end: 20110919

REACTIONS (2)
  - VOMITING [None]
  - RENAL FAILURE ACUTE [None]
